FAERS Safety Report 8166156-2 (Version None)
Quarter: 2012Q1

REPORT INFORMATION
  Report Type: 
  Country: None (occurrence: None)
  Receive Date: 20120227
  Receipt Date: 20110414
  Transmission Date: 20120608
  Serious: No
  Sender: FDA-Public Use
  Company Number: US-MYLANLABS-2011S1007823

PATIENT
  Age: 24 Year
  Sex: Male

DRUGS (2)
  1. AMNESTEEM [Suspect]
     Indication: ACNE CYSTIC
     Dates: end: 20110412
  2. AMNESTEEM [Suspect]
     Dates: end: 20110412

REACTIONS (4)
  - HAEMOGLOBINOPATHY [None]
  - BLOOD ALKALINE PHOSPHATASE INCREASED [None]
  - HIGH DENSITY LIPOPROTEIN INCREASED [None]
  - ASPARTATE AMINOTRANSFERASE INCREASED [None]
